FAERS Safety Report 13090437 (Version 1)
Quarter: 2017Q1

REPORT INFORMATION
  Report Type: Spontaneous
  Country: DE (occurrence: DE)
  Receive Date: 20170105
  Receipt Date: 20170105
  Transmission Date: 20170428
  Serious: Yes (Hospitalization, Other)
  Sender: FDA-Public Use
  Company Number: DE-ALLERGAN-1700285US

PATIENT
  Sex: Male
  Weight: 3.73 kg

DRUGS (4)
  1. CITALOPRAM HYDROBROMIDE - BP [Suspect]
     Active Substance: CITALOPRAM HYDROBROMIDE
     Indication: DEPRESSION
     Route: 063
  2. CITALOPRAM HYDROBROMIDE - BP [Suspect]
     Active Substance: CITALOPRAM HYDROBROMIDE
     Route: 064
  3. EDRONAX [Suspect]
     Active Substance: REBOXETINE MESYLATE
     Indication: DEPRESSION
     Dosage: UNK
     Route: 063
  4. EDRONAX [Suspect]
     Active Substance: REBOXETINE MESYLATE
     Dosage: UNK
     Route: 064

REACTIONS (7)
  - Weight gain poor [Recovering/Resolving]
  - Exposure during breast feeding [Unknown]
  - Hypotonia [Recovering/Resolving]
  - Feeding disorder [Recovering/Resolving]
  - Aspartate aminotransferase increased [Recovering/Resolving]
  - Alanine aminotransferase increased [Recovering/Resolving]
  - Foetal exposure during pregnancy [Unknown]
